FAERS Safety Report 6934989-3 (Version None)
Quarter: 2010Q3

REPORT INFORMATION
  Report Type: 
  Country: None (occurrence: None)
  Receive Date: 20100822
  Receipt Date: 20100809
  Transmission Date: 20110219
  Serious: Yes (Hospitalization, Disabling)
  Sender: FDA-Public Use
  Company Number: PHFR2010GB01161

PATIENT
  Sex: Male

DRUGS (8)
  1. CLOZARIL [Suspect]
     Indication: SCHIZOPHRENIA
     Dosage: 900 MG
     Route: 048
     Dates: start: 20090811
  2. DEPAKOTE [Concomitant]
     Indication: SCHIZOPHRENIA
     Dosage: 3 G
     Route: 048
  3. AMISULPRIDE [Concomitant]
     Indication: SCHIZOPHRENIA
     Dosage: 100 MG
     Route: 048
  4. DIAZEPAM [Concomitant]
     Indication: SCHIZOPHRENIA
     Dosage: 5 MG
     Route: 048
  5. LEVOTHYROXINE SODIUM [Concomitant]
     Indication: HYPERTHYROIDISM
     Dosage: 100 MCG
     Route: 048
  6. CARBIMAZOLE [Concomitant]
     Indication: HYPERTHYROIDISM
     Dosage: 40 MG
     Route: 048
  7. ACETAMINOPHEN AND CODEINE PHOSPHATE [Concomitant]
     Indication: BONE DISORDER
     Dosage: 8 DF (30/500)
     Route: 048
  8. LINEZOLID [Concomitant]

REACTIONS (3)
  - BONE DISORDER [None]
  - HIP ARTHROPLASTY [None]
  - OSTEOMYELITIS [None]
